FAERS Safety Report 6713388-3 (Version None)
Quarter: 2010Q2

REPORT INFORMATION
  Report Type: 
  Country: None (occurrence: None)
  Receive Date: 20100506
  Receipt Date: 20100422
  Transmission Date: 20101027
  Serious: Yes (Life-Threatening, Other)
  Sender: FDA-Public Use
  Company Number: DE-ROCHE-700475

PATIENT
  Age: 53 Year
  Sex: Female
  Weight: 57 kg

DRUGS (4)
  1. BEVACIZUMAB [Suspect]
     Route: 042
     Dates: start: 20081212
  2. MEDROXYPROGESTERONE [Concomitant]
     Route: 048
     Dates: start: 20090901
  3. PACLITAXEL [Concomitant]
     Route: 042
     Dates: start: 20081114, end: 20090911
  4. ENOXAPARIN SODIUM [Concomitant]
     Indication: THROMBOSIS PROPHYLAXIS
     Route: 058
     Dates: start: 20090901, end: 20100301

REACTIONS (5)
  - CUSHINGOID [None]
  - DYSPHONIA [None]
  - HEPATIC ENZYME INCREASED [None]
  - METASTASES TO LIVER [None]
  - MUSCLE SPASMS [None]
